FAERS Safety Report 24924256 (Version 3)
Quarter: 2025Q1

REPORT INFORMATION
  Report Type: Spontaneous
  Country: RU (occurrence: RU)
  Receive Date: 20250204
  Receipt Date: 20250311
  Transmission Date: 20250408
  Serious: Yes (Death, Hospitalization)
  Sender: MERCK SHARP & DOHME LLC
  Company Number: None

PATIENT
  Age: 55 Year
  Sex: Male

DRUGS (11)
  1. KEYTRUDA [Suspect]
     Active Substance: PEMBROLIZUMAB
     Indication: Non-small cell lung cancer
     Dosage: DOSE DESCRIPTION : 200 MG 0NCE IN 3 WEEKS?DAILY DOSE : 9.4 MILLIGRAM
     Route: 042
     Dates: start: 20241216
  2. FOLIC ACID [Concomitant]
     Active Substance: FOLIC ACID
     Dosage: DOSE DESCRIPTION : 1000 MICROGRAM, QD?DAILY DOSE : 1000 MICROGRAM
     Route: 048
     Dates: start: 20241206
  3. CYANOCOBALAMIN [Concomitant]
     Active Substance: CYANOCOBALAMIN
     Dosage: DOSE DESCRIPTION : 1000 MICROGRAM, ONCE?DAILY DOSE : 1000 MICROGRAM?REGIMEN DOSE : 1000  MICROGRAM
     Route: 030
     Dates: start: 20241211, end: 20241211
  4. ONDANSETRON [Concomitant]
     Active Substance: ONDANSETRON
     Route: 042
     Dates: start: 20241216, end: 20241216
  5. ONDANSETRON [Concomitant]
     Active Substance: ONDANSETRON
     Dosage: DOSE DESCRIPTION : 8 MILLIGRAM, BID?DAILY DOSE : 16 MILLIGRAM
     Route: 048
     Dates: start: 20241222
  6. ONDANSETRON [Concomitant]
     Active Substance: ONDANSETRON
     Dosage: DOSE DESCRIPTION : 8 MILLIGRAM, QD?DAILY DOSE : 8 MILLIGRAM
     Route: 042
     Dates: start: 20241223
  7. DEXAMETHASONE [Concomitant]
     Active Substance: DEXAMETHASONE
     Dosage: DOSE DESCRIPTION : 4 MILLIGRAM, BID?DAILY DOSE : 8 MILLIGRAM?REGIMEN DOSE : 8  MILLIGRAM
     Route: 048
     Dates: start: 20241215, end: 20241215
  8. DEXAMETHASONE [Concomitant]
     Active Substance: DEXAMETHASONE
     Route: 042
     Dates: start: 20241216, end: 20241216
  9. METFORMIN [Concomitant]
     Active Substance: METFORMIN HYDROCHLORIDE
     Dosage: DOSE DESCRIPTION : 500 MILLIGRAM, BID?DAILY DOSE : 1000 MILLIGRAM
     Route: 048
     Dates: start: 2023
  10. ASPIRIN [Concomitant]
     Active Substance: ASPIRIN
     Dosage: DOSE DESCRIPTION : 100 MILLIGRAM, QD?DAILY DOSE : 100 MILLIGRAM
     Route: 048
     Dates: start: 2023
  11. FILGRASTIM [Concomitant]
     Active Substance: FILGRASTIM
     Dosage: DOSE DESCRIPTION : 480 MICROGRAM, QD?DAILY DOSE : 480 MICROGRAM
     Route: 058
     Dates: start: 20241223

REACTIONS (2)
  - Renal failure [Fatal]
  - Anaemia [Fatal]

NARRATIVE: CASE EVENT DATE: 20241224
